FAERS Safety Report 5730103-0 (Version None)
Quarter: 2008Q2

REPORT INFORMATION
  Report Type: 
  Country: None (occurrence: None)
  Receive Date: 20080507
  Receipt Date: 20080429
  Transmission Date: 20081010
  Serious: Yes (Other)
  Sender: FDA-Public Use
  Company Number: PHEH2008US04179

PATIENT
  Age: 60 Year
  Sex: Male

DRUGS (13)
  1. AVASTIN [Concomitant]
  2. CARBOPLATIN [Concomitant]
  3. PACLITAXEL [Concomitant]
  4. EMEND [Concomitant]
  5. DEXAMETHASONE [Concomitant]
  6. BENADRYL [Concomitant]
  7. ZOFRAN [Concomitant]
  8. COUMADIN [Concomitant]
  9. ZOMETA [Suspect]
     Indication: METASTASES TO BONE
     Dosage: 4 MG, Q21DAYS
     Route: 042
     Dates: start: 20070330, end: 20080312
  10. CALTRATE +D [Concomitant]
  11. COMPAZINE [Concomitant]
  12. PEPCID AC [Concomitant]
  13. M.V.I. [Concomitant]

REACTIONS (2)
  - OSTEONECROSIS [None]
  - PAIN IN JAW [None]
